FAERS Safety Report 6438401-2 (Version None)
Quarter: 2009Q4

REPORT INFORMATION
  Report Type: 
  Country: None (occurrence: None)
  Receive Date: 20091112
  Receipt Date: 20091105
  Transmission Date: 20100525
  Serious: Yes (Other)
  Sender: FDA-Public Use
  Company Number: DE-AMGEN-QUU373015

PATIENT
  Sex: Female

DRUGS (1)
  1. ARANESP [Suspect]
     Indication: DRUG USE FOR UNKNOWN INDICATION

REACTIONS (5)
  - C-REACTIVE PROTEIN INCREASED [None]
  - DRUG INEFFECTIVE [None]
  - GASTRITIS [None]
  - HAEMOGLOBIN DECREASED [None]
  - TRANSPLANT FAILURE [None]
